FAERS Safety Report 8601804-1 (Version None)
Quarter: 2012Q3

REPORT INFORMATION
  Report Type: 
  Country: None (occurrence: None)
  Receive Date: 20120817
  Receipt Date: 20120605
  Transmission Date: 20120928
  Serious: Yes (Hospitalization)
  Sender: FDA-Public Use
  Company Number: US-BRISTOL-MYERS SQUIBB COMPANY-16536575

PATIENT
  Age: 54 Year
  Sex: Female

DRUGS (7)
  1. ZYPREXA [Concomitant]
  2. LOPRESSOR [Concomitant]
  3. OXYCODONE HCL [Concomitant]
  4. PROTONIX [Concomitant]
  5. ATARAX [Concomitant]
  6. ALDACTONE [Concomitant]
  7. SPRYCEL [Suspect]
     Indication: CHRONIC MYELOID LEUKAEMIA
     Dosage: INTER ON 12APR12
     Route: 048
     Dates: start: 20120313

REACTIONS (2)
  - PANCYTOPENIA [None]
  - BLAST CRISIS IN MYELOGENOUS LEUKAEMIA [None]
